FAERS Safety Report 16582277 (Version 3)
Quarter: 2019Q3

REPORT INFORMATION
  Report Type: Spontaneous
  Country: JP (occurrence: JP)
  Receive Date: 20190717
  Receipt Date: 20190823
  Transmission Date: 20191004
  Serious: No
  Sender: FDA-Public Use
  Company Number: JP-009507513-1907JPN000918J

PATIENT
  Age: 75 Year
  Sex: Male
  Weight: 51 kg

DRUGS (4)
  1. JANUVIA [Suspect]
     Active Substance: SITAGLIPTIN PHOSPHATE
     Indication: TYPE 2 DIABETES MELLITUS
     Dosage: 50 MILLIGRAM, QD
     Route: 048
     Dates: start: 20190706
  2. BROMFENAC NA NITTO [Concomitant]
     Indication: EYE INFLAMMATION
     Dosage: 1 INTERNATIONAL UNIT, BID
     Route: 047
  3. GLACTIV [Suspect]
     Active Substance: SITAGLIPTIN
     Indication: BLOOD GLUCOSE DECREASED
     Dosage: 50 MILLIGRAM, QD
     Route: 048
     Dates: start: 20190628, end: 20190705
  4. TAPROS [Concomitant]
     Indication: INTRAOCULAR PRESSURE DECREASED
     Dosage: 1 INTERNATIONAL UNIT, QD
     Route: 047

REACTIONS (1)
  - Amylase increased [Recovered/Resolved]

NARRATIVE: CASE EVENT DATE: 20190708
